FAERS Safety Report 7169604-X (Version None)
Quarter: 2010Q4

REPORT INFORMATION
  Report Type: 
  Country: None (occurrence: None)
  Receive Date: 20101217
  Receipt Date: 20101210
  Transmission Date: 20110411
  Serious: Yes (Other)
  Sender: FDA-Public Use
  Company Number: US-JNJFOC-20100800379

PATIENT
  Sex: Male

DRUGS (1)
  1. LEVAQUIN [Suspect]
     Indication: PNEUMONIA
     Route: 048

REACTIONS (3)
  - PAIN IN EXTREMITY [None]
  - PLANTAR FASCIITIS [None]
  - TENDON INJURY [None]
